FAERS Safety Report 18895273 (Version 1)
Quarter: 2021Q1

REPORT INFORMATION
  Report Type: Spontaneous
  Country: GB (occurrence: GB)
  Receive Date: 20210215
  Receipt Date: 20210215
  Transmission Date: 20210420
  Serious: Yes (Other)
  Sender: FDA-Public Use
  Company Number: GB-TAKEDA-2021TUS007009

PATIENT

DRUGS (1)
  1. PENTASA [Suspect]
     Active Substance: MESALAMINE
     Indication: COLITIS ULCERATIVE
     Dosage: UNK
     Route: 065
     Dates: end: 201909

REACTIONS (6)
  - Crohn^s disease [Unknown]
  - Iron deficiency anaemia [Recovering/Resolving]
  - Anastomotic ulcer [Unknown]
  - Leukopenia [Recovering/Resolving]
  - Peritonitis [Recovering/Resolving]
  - Obstruction gastric [Unknown]

NARRATIVE: CASE EVENT DATE: 2014
